FAERS Safety Report 25774851 (Version 1)
Quarter: 2025Q3

REPORT INFORMATION
  Report Type: Report from Study
  Country: AU (occurrence: AU)
  Receive Date: 20250908
  Receipt Date: 20250908
  Transmission Date: 20251020
  Serious: Yes (Other)
  Sender: TRAVERE THERAPEUTICS
  Company Number: AU-BEH-2025217542

PATIENT
  Age: 32 Year
  Sex: Male
  Weight: 100.8 kg

DRUGS (2)
  1. FILSPARI [Suspect]
     Active Substance: SPARSENTAN
     Indication: IgA nephropathy
     Route: 065
     Dates: end: 202507
  2. FILSPARI [Suspect]
     Active Substance: SPARSENTAN
     Dosage: 400 MG, OD
     Route: 048
     Dates: start: 20250801, end: 20250816

REACTIONS (2)
  - Rash pruritic [Unknown]
  - Urticaria [Unknown]

NARRATIVE: CASE EVENT DATE: 20250816
